FAERS Safety Report 11999327 (Version 1)
Quarter: 2016Q1

REPORT INFORMATION
  Report Type: Spontaneous
  Country: US (occurrence: US)
  Receive Date: 20160204
  Receipt Date: 20160204
  Transmission Date: 20160526
  Serious: No
  Sender: FDA-Public Use
  Company Number: US-ASTRAZENECA-2016SE08364

PATIENT
  Age: 772 Month
  Sex: Female
  Weight: 60.8 kg

DRUGS (7)
  1. CRESTOR [Suspect]
     Active Substance: ROSUVASTATIN CALCIUM
     Indication: BLOOD CHOLESTEROL ABNORMAL
     Route: 048
     Dates: start: 20150809, end: 20151113
  2. SYNTHROID [Concomitant]
     Active Substance: LEVOTHYROXINE SODIUM
     Indication: THYROID DISORDER
     Route: 048
     Dates: start: 1974
  3. ULTRA-PROBIOTIC [Concomitant]
     Indication: BLOOD PRESSURE ABNORMAL
     Dosage: DAILY
     Route: 048
     Dates: start: 201508, end: 20160120
  4. ALLOPURINOL. [Concomitant]
     Active Substance: ALLOPURINOL
     Indication: GOUT
     Route: 048
     Dates: start: 2012
  5. TRIAMTERENE. [Concomitant]
     Active Substance: TRIAMTERENE
     Indication: MENIERE^S DISEASE
     Dosage: DAILY
     Route: 048
     Dates: start: 201508
  6. WARFARIN [Concomitant]
     Active Substance: WARFARIN
     Indication: ANTICOAGULANT THERAPY
     Route: 048
     Dates: start: 2000
  7. UBIQUINOL [Concomitant]
     Active Substance: UBIQUINOL
     Indication: MUSCLE DISORDER

REACTIONS (12)
  - Peripheral swelling [Recovered/Resolved]
  - Ear disorder [Unknown]
  - Gait disturbance [Recovered/Resolved]
  - Pain in extremity [Recovered/Resolved]
  - Hand deformity [Recovering/Resolving]
  - Adverse event [Recovered/Resolved]
  - Asthenia [Not Recovered/Not Resolved]
  - Deafness [Unknown]
  - Laboratory test abnormal [Recovering/Resolving]
  - Myalgia [Not Recovered/Not Resolved]
  - Limb discomfort [Recovering/Resolving]
  - Muscular weakness [Not Recovered/Not Resolved]

NARRATIVE: CASE EVENT DATE: 201511
